FAERS Safety Report 11352927 (Version 1)
Quarter: 2015Q3

REPORT INFORMATION
  Report Type: Spontaneous
  Country: US (occurrence: US)
  Receive Date: 20150807
  Receipt Date: 20150807
  Transmission Date: 20151125
  Serious: No
  Sender: FDA-Public Use
  Company Number: US-JNJFOC-20141201366

PATIENT
  Age: 59 Year
  Sex: Female
  Weight: 44.45 kg

DRUGS (3)
  1. MENS ROGAINE EXTRA STRENGTH [Suspect]
     Active Substance: MINOXIDIL
     Indication: HAIR GROWTH ABNORMAL
     Dosage: A DAB ON A Q TIP
     Route: 061
  2. MENS ROGAINE EXTRA STRENGTH [Suspect]
     Active Substance: MINOXIDIL
     Indication: SCAR
     Dosage: A DAB ON A Q TIP
     Route: 061
  3. MENS ROGAINE EXTRA STRENGTH [Suspect]
     Active Substance: MINOXIDIL
     Indication: INFLAMMATION
     Dosage: A DAB ON A Q TIP
     Route: 061

REACTIONS (4)
  - Drug ineffective [Unknown]
  - Wrong technique in product usage process [Unknown]
  - Incorrect dose administered [Unknown]
  - Product use issue [Unknown]
